FAERS Safety Report 10866948 (Version 2)
Quarter: 2015Q1

REPORT INFORMATION
  Report Type: Other
  Country: GR (occurrence: GR)
  Receive Date: 20150225
  Receipt Date: 20150327
  Transmission Date: 20150721
  Serious: Yes (Other)
  Sender: FDA-Public Use
  Company Number: GR-ACTELION-A-CH2015-113356

PATIENT
  Age: 66 Year
  Sex: Female

DRUGS (2)
  1. ZAVESCA [Suspect]
     Active Substance: MIGLUSTAT
     Indication: GAUCHER^S DISEASE
     Dosage: UNK
     Route: 048
     Dates: start: 200311, end: 200404
  2. ZAVESCA [Suspect]
     Active Substance: MIGLUSTAT
     Dosage: UNK
     Route: 048
     Dates: start: 200409, end: 200711

REACTIONS (7)
  - Fracture [Unknown]
  - Haemoglobin decreased [Unknown]
  - Anaemia [Unknown]
  - Diarrhoea [Unknown]
  - Skin lesion [Unknown]
  - Accident at home [Unknown]
  - Tremor [Unknown]

NARRATIVE: CASE EVENT DATE: 200404
